FAERS Safety Report 4966425-0 (Version None)
Quarter: 2006Q2

REPORT INFORMATION
  Report Type: 
  Country: None (occurrence: None)
  Receive Date: 20060407
  Receipt Date: 20060310
  Transmission Date: 20061013
  Serious: Yes (Hospitalization)
  Sender: FDA-Public Use
  Company Number: US-ROCHE-439863

PATIENT
  Age: 55 Year
  Sex: Female
  Weight: 54.5 kg

DRUGS (5)
  1. RIBAVIRIN [Suspect]
     Route: 048
     Dates: start: 20051018, end: 20060307
  2. PEG-INTERFERON ALFA 2A (RO 25-8310) [Suspect]
     Route: 058
     Dates: start: 20051018, end: 20060307
  3. HYDROXYZINE [Concomitant]
     Dates: start: 20060124, end: 20060309
  4. SINGULAIR [Concomitant]
     Dates: start: 20060206
  5. CELEXA [Concomitant]
     Dates: start: 20051130

REACTIONS (7)
  - CHRONIC OBSTRUCTIVE PULMONARY DISEASE [None]
  - COUGH [None]
  - DYSPNOEA [None]
  - EMPHYSEMA [None]
  - PRURITUS GENERALISED [None]
  - PYREXIA [None]
  - RASH [None]
